FAERS Safety Report 18189314 (Version 1)
Quarter: 2020Q3

REPORT INFORMATION
  Report Type: Spontaneous
  Country: DE (occurrence: DE)
  Receive Date: 20200825
  Receipt Date: 20200825
  Transmission Date: 20201103
  Serious: Yes (Other)
  Sender: FDA-Public Use
  Company Number: DE-DRREDDYS-GER/GER/20/0126100

PATIENT
  Age: 27 Year
  Sex: Male
  Weight: 77 kg

DRUGS (4)
  1. CITALOPRAM BETA 30 MG FILMTABLETTEN [Suspect]
     Active Substance: CITALOPRAM HYDROBROMIDE
     Indication: PRODUCT USED FOR UNKNOWN INDICATION
     Dosage: 40 TABLETTE/N (MAXIMUM)
     Route: 048
  2. MIRTAZAPIN HEUMANN 15 MG FILMTABLETTEN [Suspect]
     Active Substance: MIRTAZAPINE
     Indication: PRODUCT USED FOR UNKNOWN INDICATION
     Dosage: 5 TABLETTE/N (MAXIMUM)
     Route: 048
  3. MIRTAZAPIN PUREN 30 MG FILMTABLETTEN [Suspect]
     Active Substance: MIRTAZAPINE
     Indication: PRODUCT USED FOR UNKNOWN INDICATION
     Dosage: 10 TABLETTE/N (MAXIMUM)
     Route: 048
  4. GABAPENTIN MICRO LABS 100 MG [Suspect]
     Active Substance: GABAPENTIN
     Indication: PRODUCT USED FOR UNKNOWN INDICATION
     Dosage: 20 TABLETTE/N (MAXIMUM)
     Route: 048

REACTIONS (5)
  - Hypotension [Unknown]
  - Somnolence [Unknown]
  - Sopor [Unknown]
  - Intentional overdose [Unknown]
  - Sinus bradycardia [Unknown]
